FAERS Safety Report 8571936-5 (Version None)
Quarter: 2012Q3

REPORT INFORMATION
  Report Type: 
  Country: None (occurrence: None)
  Receive Date: 20120806
  Receipt Date: 20120731
  Transmission Date: 20120928
  Serious: Yes (Hospitalization)
  Sender: FDA-Public Use
  Company Number: BE-PFIZER INC-2012186574

PATIENT
  Age: 42 Year
  Sex: Female
  Weight: 84 kg

DRUGS (6)
  1. DESMOPRESSIN [Concomitant]
     Indication: BLOOD ANTIDIURETIC HORMONE ABNORMAL
     Dosage: UNK
     Dates: start: 20011115
  2. LEVOTHYROXINE [Concomitant]
     Indication: HYPOTHYROIDISM
     Dosage: UNK
     Dates: start: 20011115
  3. ETHINYLESTRADIOL [Concomitant]
     Indication: BLOOD FOLLICLE STIMULATING HORMONE ABNORMAL
  4. GENOTROPIN [Suspect]
     Dosage: 0.5 MG 7/WK
     Route: 058
     Dates: start: 20030401
  5. ETHINYLESTRADIOL [Concomitant]
     Indication: BLOOD LUTEINISING HORMONE ABNORMAL
     Dosage: UNK
     Dates: start: 20011115
  6. CORTISONE ACETATE [Concomitant]
     Indication: BLOOD CORTICOTROPHIN ABNORMAL
     Dosage: UNK
     Dates: start: 20030211

REACTIONS (1)
  - BACK PAIN [None]
